FAERS Safety Report 24963109 (Version 1)
Quarter: 2025Q1

REPORT INFORMATION
  Report Type: Spontaneous
  Country: US (occurrence: US)
  Receive Date: 20250213
  Receipt Date: 20250213
  Transmission Date: 20250409
  Serious: No
  Sender: STRIDES
  Company Number: US-STRIDES ARCOLAB LIMITED-2024SP016289

PATIENT
  Age: 12 Month
  Sex: Female

DRUGS (14)
  1. MYCOPHENOLATE MOFETIL [Suspect]
     Active Substance: MYCOPHENOLATE MOFETIL
     Indication: Opsoclonus myoclonus
     Route: 065
  2. MYCOPHENOLATE MOFETIL [Suspect]
     Active Substance: MYCOPHENOLATE MOFETIL
     Indication: Ataxia
  3. TACROLIMUS [Suspect]
     Active Substance: TACROLIMUS
     Indication: Opsoclonus myoclonus
     Route: 065
  4. TACROLIMUS [Suspect]
     Active Substance: TACROLIMUS
     Indication: Ataxia
  5. CORTICOTROPIN [Concomitant]
     Active Substance: CORTICOTROPIN
     Indication: Opsoclonus myoclonus
     Route: 065
  6. CORTICOTROPIN [Concomitant]
     Active Substance: CORTICOTROPIN
     Indication: Ataxia
     Route: 065
  7. CORTICOTROPIN [Concomitant]
     Active Substance: CORTICOTROPIN
     Route: 065
  8. CORTICOTROPIN [Concomitant]
     Active Substance: CORTICOTROPIN
     Route: 065
  9. IMMUNE GLOBULIN [Concomitant]
     Indication: Opsoclonus myoclonus
     Route: 042
  10. IMMUNE GLOBULIN [Concomitant]
     Indication: Ataxia
  11. RITUXIMAB [Concomitant]
     Active Substance: RITUXIMAB
     Indication: Opsoclonus myoclonus
     Route: 065
  12. RITUXIMAB [Concomitant]
     Active Substance: RITUXIMAB
     Indication: Ataxia
     Route: 065
  13. CYCLOPHOSPHAMIDE [Concomitant]
     Active Substance: CYCLOPHOSPHAMIDE
     Indication: Opsoclonus myoclonus
     Route: 065
  14. CYCLOPHOSPHAMIDE [Concomitant]
     Active Substance: CYCLOPHOSPHAMIDE
     Indication: Ataxia

REACTIONS (2)
  - Treatment noncompliance [Unknown]
  - Off label use [Unknown]
